FAERS Safety Report 7708698-7 (Version None)
Quarter: 2011Q3

REPORT INFORMATION
  Report Type: 
  Country: None (occurrence: None)
  Receive Date: 20110825
  Receipt Date: 20110818
  Transmission Date: 20111222
  Serious: Yes (Death, Hospitalization)
  Sender: FDA-Public Use
  Company Number: FR-SANOFI-AVENTIS-2011SA052848

PATIENT
  Age: 82 Year
  Sex: Male

DRUGS (10)
  1. FUNGIZONE [Suspect]
     Indication: ORAL FUNGAL INFECTION
     Route: 048
     Dates: start: 20110723, end: 20110729
  2. ESOMEPRAZOLE MAGNESIUM [Suspect]
     Route: 048
     Dates: start: 20110625, end: 20110729
  3. METFORMIN HCL [Suspect]
     Route: 048
     Dates: start: 20071201, end: 20110729
  4. LOVENOX [Suspect]
     Indication: THROMBOSIS PROPHYLAXIS
     Route: 058
     Dates: start: 20110625, end: 20110728
  5. SPECIAFOLDINE [Suspect]
     Route: 048
     Dates: start: 20110720, end: 20110729
  6. ASPIRIN [Suspect]
     Route: 048
     Dates: start: 20110611, end: 20110729
  7. BISOPROLOL FUMARATE [Suspect]
     Indication: TACHYCARDIA
     Route: 048
     Dates: start: 20110727, end: 20110729
  8. FUROSEMIDE [Suspect]
     Route: 048
     Dates: start: 20110625, end: 20110729
  9. TRANSIPEG /FRA/ [Concomitant]
  10. IMOVANE [Concomitant]
     Route: 048

REACTIONS (1)
  - THROMBOCYTOPENIA [None]
